FAERS Safety Report 7126073-3 (Version None)
Quarter: 2010Q4

REPORT INFORMATION
  Report Type: 
  Country: None (occurrence: None)
  Receive Date: 20101129
  Receipt Date: 20101119
  Transmission Date: 20110411
  Serious: No
  Sender: FDA-Public Use
  Company Number: GB-MERCK-1010GBR00072

PATIENT
  Age: 74 Year
  Sex: Female
  Weight: 49 kg

DRUGS (5)
  1. FOSAMAX [Suspect]
     Indication: OSTEOPOROSIS
     Route: 048
     Dates: start: 20040801, end: 20100501
  2. VITAMIN D (UNSPECIFIED) [Concomitant]
     Route: 065
  3. CALCIUM CARBONATE AND CHOLECALCIFEROL [Concomitant]
     Indication: BONE DISORDER
     Route: 065
     Dates: start: 20080401
  4. LANSOPRAZOLE [Concomitant]
     Indication: GASTROOESOPHAGEAL REFLUX DISEASE
     Route: 065
     Dates: start: 20070301
  5. BENDROFLUMETHIAZIDE [Concomitant]
     Indication: HYPOTENSION
     Route: 065
     Dates: start: 20080501

REACTIONS (2)
  - DRUG INEFFECTIVE [None]
  - TOOTH DISORDER [None]
